FAERS Safety Report 24243560 (Version 1)
Quarter: 2024Q3

REPORT INFORMATION
  Report Type: Report from Study
  Country: AR (occurrence: AR)
  Receive Date: 20240823
  Receipt Date: 20240823
  Transmission Date: 20241017
  Serious: Yes (Death, Other)
  Sender: BLUEPRINT MEDICINES
  Company Number: AR-ROCHE-10000057630

PATIENT

DRUGS (2)
  1. PRALSETINIB [Suspect]
     Active Substance: PRALSETINIB
     Indication: Medullary thyroid cancer
     Dosage: DOSE AND FREQUENCY WERE NOT REPORTED
     Route: 065
     Dates: start: 20211028
  2. VANDETANIB [Suspect]
     Active Substance: VANDETANIB
     Indication: Medullary thyroid cancer
     Route: 065
     Dates: start: 20160503, end: 20180810

REACTIONS (2)
  - Liver disorder [Fatal]
  - Disease progression [Unknown]
